FAERS Safety Report 4564172-0 (Version None)
Quarter: 2005Q1

REPORT INFORMATION
  Report Type: 
  Country: None (occurrence: None)
  Receive Date: 20050126
  Receipt Date: 20050113
  Transmission Date: 20050727
  Serious: Yes (Hospitalization)
  Sender: FDA-Public Use
  Company Number: 2005-00181

PATIENT
  Age: 24 Year

DRUGS (1)
  1. ACETAMINOPHEN/CODEINE PHOSPHATE (WATSON LABORATORIES) (CODEINE PHOSPHA [Suspect]
     Indication: ANALGESIC EFFECT
     Dosage: 1 TABLET (APAP/COD 500/20 MG), ORAL
     Route: 048

REACTIONS (1)
  - PANCREATITIS ACUTE [None]
